FAERS Safety Report 16830644 (Version 4)
Quarter: 2020Q1

REPORT INFORMATION
  Report Type: Spontaneous
  Country: PL (occurrence: PL)
  Receive Date: 20190920
  Receipt Date: 20200117
  Transmission Date: 20200409
  Serious: Yes (Other)
  Sender: FDA-Public Use
  Company Number: PL-TEVA-2019-PL-1111957

PATIENT
  Age: 73 Year
  Sex: Male

DRUGS (17)
  1. NEBIVOLOL. [Suspect]
     Active Substance: NEBIVOLOL
     Indication: CARDIAC FAILURE
     Dosage: 5 MILLIGRAM DAILY;
     Route: 065
  2. DICLOFENAC [Suspect]
     Active Substance: DICLOFENAC
     Indication: ARTHRALGIA
     Dosage: THE DOSAGE DEPENDED ON THE SEVERITY OF THE PATIENT^S PAIN
     Route: 048
  3. POTASSIUM SUPPLEMENT [Suspect]
     Active Substance: POTASSIUM
     Route: 065
  4. ACID ACETYLSALICYLIC [Concomitant]
     Active Substance: ASPIRIN
     Indication: HYPERTENSION
     Dosage: 75 MILLIGRAM DAILY;
     Route: 065
  5. DICLOFENAC [Suspect]
     Active Substance: DICLOFENAC
     Indication: ARTHRALGIA
     Dosage: THE DOSAGE DEPENDED ON THE SEVERITY OF THE PATIENT^S PAIN
     Route: 061
  6. LOSARTAN. [Suspect]
     Active Substance: LOSARTAN
     Indication: CARDIAC FAILURE
  7. NAPROXEN. [Suspect]
     Active Substance: NAPROXEN
     Indication: ARTHRALGIA
     Dosage: THE DOSAGE DEPENDED ON THE SEVERITY OF THE PATIENT^S PAIN
     Route: 061
  8. PERINDOPRIL [Suspect]
     Active Substance: PERINDOPRIL
     Indication: HYPERTENSION
     Route: 065
  9. NEBIVOLOL. [Suspect]
     Active Substance: NEBIVOLOL
     Indication: HYPERTENSION
  10. NAPROXEN. [Suspect]
     Active Substance: NAPROXEN
     Indication: ARTHRALGIA
     Dosage: THE DOSAGE DEPENDED ON THE SEVERITY OF THE PATIENT^S PAIN
     Route: 048
  11. ATORVASTATIN [Concomitant]
     Active Substance: ATORVASTATIN
     Indication: CARDIAC FAILURE
  12. PERINDOPRIL [Suspect]
     Active Substance: PERINDOPRIL
     Indication: CARDIAC FAILURE
     Dosage: 5 MILLIGRAM DAILY;
     Route: 048
  13. LOSARTAN. [Suspect]
     Active Substance: LOSARTAN
     Indication: HYPERTENSION
     Dosage: 100 MILLIGRAM DAILY;
     Route: 065
  14. INDAPAMIDE. [Concomitant]
     Active Substance: INDAPAMIDE
     Indication: HYPERTENSION
     Dosage: 1.5 MILLIGRAM DAILY;
     Route: 065
  15. INDAPAMIDE. [Concomitant]
     Active Substance: INDAPAMIDE
     Indication: CARDIAC FAILURE
     Route: 065
  16. ACID ACETYLSALICYLIC [Concomitant]
     Active Substance: ASPIRIN
     Indication: CARDIAC FAILURE
  17. ATORVASTATIN [Concomitant]
     Active Substance: ATORVASTATIN
     Indication: HYPERTENSION
     Dosage: 20 MILLIGRAM DAILY;
     Route: 065

REACTIONS (3)
  - Drug intolerance [Unknown]
  - Cough [Unknown]
  - Hyperkalaemia [Recovered/Resolved]

NARRATIVE: CASE EVENT DATE: 2019
